FAERS Safety Report 5125117-8 (Version None)
Quarter: 2006Q4

REPORT INFORMATION
  Report Type: 
  Country: None (occurrence: None)
  Receive Date: 20061011
  Receipt Date: 20061010
  Transmission Date: 20070319
  Serious: Yes (Other)
  Sender: FDA-Public Use
  Company Number: US-ALLERGAN-0606143US

PATIENT
  Age: 84 Year
  Sex: Female

DRUGS (5)
  1. ALPHAGAN P [Suspect]
     Indication: GLAUCOMA
     Dosage: UNK, SINGLE
     Route: 047
  2. TRUSOPT [Concomitant]
     Indication: DRUG USE FOR UNKNOWN INDICATION
  3. XALATAN [Concomitant]
     Indication: DRUG USE FOR UNKNOWN INDICATION
  4. AVAPRO [Concomitant]
     Indication: DRUG USE FOR UNKNOWN INDICATION
  5. SYNTHROID [Concomitant]
     Indication: DRUG USE FOR UNKNOWN INDICATION

REACTIONS (2)
  - CEREBROVASCULAR ACCIDENT [None]
  - CONFUSIONAL STATE [None]
